FAERS Safety Report 21205222 (Version 1)
Quarter: 2022Q3

REPORT INFORMATION
  Report Type: Spontaneous
  Country: US (occurrence: US)
  Receive Date: 20220812
  Receipt Date: 20220812
  Transmission Date: 20221026
  Serious: Yes (Hospitalization)
  Sender: FDA-Public Use
  Company Number: US-JNJFOC-20220817408

PATIENT
  Age: 56 Year
  Sex: Male

DRUGS (2)
  1. DIPHENHYDRAMINE HYDROCHLORIDE [Suspect]
     Active Substance: DIPHENHYDRAMINE HYDROCHLORIDE
     Indication: Sleep disorder therapy
     Dosage: 4 25-MG TABLETS
     Route: 065
  2. DIPHENHYDRAMINE HYDROCHLORIDE [Suspect]
     Active Substance: DIPHENHYDRAMINE HYDROCHLORIDE
     Dosage: 12 TABLETS 3 TIMES A DAY (900MG DAILY TOTAL)
     Route: 065

REACTIONS (7)
  - Drug abuse [Unknown]
  - Product use in unapproved indication [Recovered/Resolved]
  - Delusion [Recovered/Resolved]
  - Hallucination, auditory [Recovered/Resolved]
  - Dyskinesia [Recovered/Resolved]
  - Toxicity to various agents [Recovered/Resolved]
  - Substance-induced psychotic disorder [Recovered/Resolved with Sequelae]
